FAERS Safety Report 17772315 (Version 1)
Quarter: 2020Q2

REPORT INFORMATION
  Report Type: Spontaneous
  Country: US (occurrence: US)
  Receive Date: 20200512
  Receipt Date: 20200512
  Transmission Date: 20200714
  Serious: No
  Sender: FDA-Public Use
  Company Number: US-BAYER-2020-068466

PATIENT
  Sex: Male

DRUGS (5)
  1. ASPIRIN (CARDIO) [Suspect]
     Active Substance: ASPIRIN
     Dosage: 1 DF, QD
     Route: 048
  2. METFORMIN [Concomitant]
     Active Substance: METFORMIN HYDROCHLORIDE
  3. EQUATE STOOL SOFTENER [Concomitant]
     Active Substance: CASANTHRANOL\DOCUSATE SODIUM
  4. CHOLESTEROL [Concomitant]
     Active Substance: CHOLESTEROL
  5. MIRALAX [Suspect]
     Active Substance: POLYETHYLENE GLYCOL 3350
     Indication: GASTROINTESTINAL DISORDER
     Route: 048

REACTIONS (2)
  - Incorrect product administration duration [Unknown]
  - Inappropriate schedule of product administration [Unknown]

NARRATIVE: CASE EVENT DATE: 2019
